FAERS Safety Report 6508622-9 (Version None)
Quarter: 2009Q4

REPORT INFORMATION
  Report Type: 
  Country: None (occurrence: None)
  Receive Date: 20091221
  Receipt Date: 20091211
  Transmission Date: 20100525
  Serious: Yes (Hospitalization)
  Sender: FDA-Public Use
  Company Number: ES-ELI_LILLY_AND_COMPANY-ES200912002954

PATIENT
  Age: 83 Year
  Sex: Female

DRUGS (5)
  1. FORTEO [Suspect]
     Indication: OSTEOPOROSIS
     Dosage: 20 UG, UNKNOWN
     Route: 058
     Dates: start: 20090101, end: 20091101
  2. LYRICA [Concomitant]
     Indication: PAIN
     Route: 048
     Dates: start: 20090401
  3. NOLOTIL [Concomitant]
     Indication: PAIN
     Route: 048
     Dates: start: 20090401
  4. TRAST PATCH [Concomitant]
     Indication: PAIN
     Route: 061
     Dates: start: 20090401
  5. IDEOS                              /00944201/ [Concomitant]
     Indication: PAIN
     Dosage: UNK, UNKNOWN
     Route: 048
     Dates: start: 20091012

REACTIONS (2)
  - ARRHYTHMIA [None]
  - ASTHENIA [None]
